FAERS Safety Report 22162604 (Version 1)
Quarter: 2023Q1

REPORT INFORMATION
  Report Type: Spontaneous
  Country: IN (occurrence: IN)
  Receive Date: 20230331
  Receipt Date: 20230331
  Transmission Date: 20230418
  Serious: Yes (Life-Threatening, Other)
  Sender: FDA-Public Use
  Company Number: IN-drreddys-LIT/IND/23/0162981

PATIENT

DRUGS (6)
  1. PACLITAXEL [Suspect]
     Active Substance: PACLITAXEL
     Indication: Head and neck cancer
     Dosage: ON DAY 1
  2. PACLITAXEL [Suspect]
     Active Substance: PACLITAXEL
     Dosage: ON DAY 1
  3. DOCETAXEL [Suspect]
     Active Substance: DOCETAXEL
     Indication: Head and neck cancer
     Dosage: OVER 1 HOUR ON DAY 1
  4. DOCETAXEL [Suspect]
     Active Substance: DOCETAXEL
     Dosage: OVER 1 HOUR ON DAY 1
  5. CARBOPLATIN [Suspect]
     Active Substance: CARBOPLATIN
     Indication: Head and neck cancer
     Dosage: AREA UNDER CURVE (AUC) 5 FOR 3-WEEKLY PROTOCOL, WHILE THE DOSE WAS 80 MG/M2 AND AUC2, RESPECTIVELY,
  6. CISPLATIN [Suspect]
     Active Substance: CISPLATIN
     Indication: Head and neck cancer
     Dosage: OVER 1 HOUR DIVIDED IN 2 DAYS

REACTIONS (2)
  - Cardiotoxicity [Unknown]
  - Product use in unapproved indication [Unknown]
